FAERS Safety Report 9198726 (Version 1)
Quarter: 2013Q1

REPORT INFORMATION
  Report Type: Report from Study
  Country: CA (occurrence: CA)
  Receive Date: 20130329
  Receipt Date: 20130329
  Transmission Date: 20140127
  Serious: Yes (Other)
  Sender: FDA-Public Use
  Company Number: CA-JNJFOC-20130312074

PATIENT
  Sex: Male
  Weight: 83.92 kg

DRUGS (4)
  1. REMICADE [Suspect]
     Indication: CROHN^S DISEASE
     Route: 042
  2. REMICADE [Suspect]
     Indication: CROHN^S DISEASE
     Dosage: STARTED THERAPY APPROXIMATELY 1.5 TO 2 YEARS AGO.
     Route: 042
  3. IMURAN [Concomitant]
     Indication: GASTROINTESTINAL DISORDER
     Route: 065
  4. FOLIC ACID [Concomitant]
     Route: 065

REACTIONS (4)
  - Arthritis [Recovering/Resolving]
  - Gastrointestinal disorder [Recovering/Resolving]
  - Asthenia [Recovering/Resolving]
  - Pain [Recovering/Resolving]
